FAERS Safety Report 17180018 (Version 3)
Quarter: 2020Q1

REPORT INFORMATION
  Report Type: Spontaneous
  Country: AR (occurrence: AR)
  Receive Date: 20191219
  Receipt Date: 20200207
  Transmission Date: 20200409
  Serious: Yes (Other)
  Sender: FDA-Public Use
  Company Number: AR-PFIZER INC-2019543179

PATIENT
  Age: 49 Year
  Sex: Female

DRUGS (1)
  1. IBRANCE [Suspect]
     Active Substance: PALBOCICLIB
     Indication: BREAST CANCER METASTATIC
     Dosage: 125 MG, CYCLIC (DAILY 3X1 SCHEME)
     Dates: start: 20190809

REACTIONS (4)
  - Carpal tunnel syndrome [Unknown]
  - Neuropathy peripheral [Unknown]
  - Folate deficiency [Unknown]
  - Vitamin B12 deficiency [Unknown]

NARRATIVE: CASE EVENT DATE: 201912
